FAERS Safety Report 21220924 (Version 1)
Quarter: 2022Q3

REPORT INFORMATION
  Report Type: Spontaneous
  Country: US (occurrence: US)
  Receive Date: 20220817
  Receipt Date: 20220817
  Transmission Date: 20221027
  Serious: No
  Sender: FDA-Public Use
  Company Number: US-SA-SAC20220814000068

PATIENT
  Age: 54 Year
  Sex: Male

DRUGS (10)
  1. DUPIXENT [Suspect]
     Active Substance: DUPILUMAB
     Indication: Nasal polyps
     Dosage: 300 MG, QOW
     Route: 058
  2. DUPIXENT [Suspect]
     Active Substance: DUPILUMAB
     Indication: Asthma
  3. NUCALA [Concomitant]
     Active Substance: MEPOLIZUMAB
  4. BUDESONIDE [Concomitant]
     Active Substance: BUDESONIDE
  5. LISINOPRIL [Concomitant]
     Active Substance: LISINOPRIL
  6. ACETAMINOPHEN\HYDROCODONE [Concomitant]
     Active Substance: ACETAMINOPHEN\HYDROCODONE
  7. DIAZEPAM [Concomitant]
     Active Substance: DIAZEPAM
  8. SINUVA [Concomitant]
     Active Substance: MOMETASONE FUROATE
  9. MONTELUKAST [Concomitant]
     Active Substance: MONTELUKAST SODIUM
  10. SYMBICORT [Concomitant]
     Active Substance: BUDESONIDE\FORMOTEROL FUMARATE DIHYDRATE

REACTIONS (3)
  - Hyposmia [Recovering/Resolving]
  - Hypogeusia [Recovering/Resolving]
  - Product use in unapproved indication [Unknown]
